FAERS Safety Report 6774485-X (Version None)
Quarter: 2010Q2

REPORT INFORMATION
  Report Type: 
  Country: None (occurrence: None)
  Receive Date: 20100617
  Receipt Date: 20100607
  Transmission Date: 20101027
  Serious: Yes (Other)
  Sender: FDA-Public Use
  Company Number: PHHY2010JP26088

PATIENT
  Sex: Female
  Weight: 38 kg

DRUGS (19)
  1. ICL670A ICL+DISTAB [Suspect]
     Indication: MYELODYSPLASTIC SYNDROME
     Dosage: 500 MG DAILY
     Route: 048
     Dates: start: 20080807, end: 20090827
  2. ICL670A ICL+DISTAB [Suspect]
     Indication: IRON OVERLOAD
  3. HYDREA [Suspect]
     Indication: MYELODYSPLASTIC SYNDROME
     Dosage: 1500 MG DAILY
     Route: 048
     Dates: start: 20080818, end: 20090827
  4. HYDREA [Suspect]
     Route: 048
  5. HYDREA [Suspect]
     Route: 048
  6. PRIMOBOLAN [Concomitant]
     Indication: MYELODYSPLASTIC SYNDROME
     Dosage: 20 MG; UNK
     Route: 048
     Dates: start: 20080807, end: 20081207
  7. ALOSITOL [Concomitant]
     Dosage: 200 MG; UNK
     Route: 048
     Dates: start: 20080807, end: 20090827
  8. RENIVACE [Concomitant]
     Dosage: 5 MG; UNK
     Route: 048
     Dates: start: 20080807, end: 20090902
  9. ALDACTONE [Concomitant]
     Dosage: 25 MG; UNK
     Route: 048
     Dates: start: 20080807, end: 20090902
  10. LASIX [Concomitant]
     Dosage: 40 MG; UNK
     Route: 048
     Dates: start: 20080807, end: 20090902
  11. DIGOXIN (HALF) [Concomitant]
     Dosage: 0.0625 MG; UNK
     Route: 048
     Dates: start: 20080807
  12. DIGOXIN (HALF) [Concomitant]
     Dosage: 0.125 MG; UNK
     Route: 048
     Dates: end: 20090902
  13. ARTIST [Concomitant]
     Dosage: 5 MG; UNK
     Route: 048
     Dates: start: 20080807, end: 20090902
  14. RED BLOOD CELLS, LEUCOCYTE DEPLETED [Concomitant]
     Dosage: 2 UNITS EVERY 3 WEEKS
     Dates: start: 20080807
  15. RED BLOOD CELLS, LEUCOCYTE DEPLETED [Concomitant]
     Dosage: EVERY 10 DAYS
     Dates: start: 20080901
  16. RED BLOOD CELLS, LEUCOCYTE DEPLETED [Concomitant]
     Dosage: EVERY 2 WEEKS
     Dates: start: 20080929
  17. RED BLOOD CELLS, LEUCOCYTE DEPLETED [Concomitant]
     Dosage: EVERY 4 WEEKS
     Dates: start: 20090902
  18. RED BLOOD CELLS, LEUCOCYTE DEPLETED [Concomitant]
     Dosage: EVERY 2 WEEKS
     Dates: start: 20090302
  19. RED BLOOD CELLS, LEUCOCYTE DEPLETED [Concomitant]
     Dosage: EVERY 4 WEEKS
     Dates: start: 20090328

REACTIONS (4)
  - ANAEMIA [None]
  - BLOOD CREATININE INCREASED [None]
  - PLATELET COUNT DECREASED [None]
  - WHITE BLOOD CELL COUNT INCREASED [None]
